FAERS Safety Report 4276976-2 (Version None)
Quarter: 2004Q1

REPORT INFORMATION
  Report Type: 
  Country: None (occurrence: None)
  Receive Date: 20040109
  Receipt Date: 20031229
  Transmission Date: 20041129
  Serious: Yes (Other)
  Sender: FDA-Public Use
  Company Number: 12467247

PATIENT
  Age: 58 Year
  Sex: Female

DRUGS (3)
  1. CYCLOPHOSPHAMIDE [Suspect]
     Indication: BREAST CANCER
     Dosage: 1500 MG/M2, 1 DAY IV
     Route: 042
  2. CARBOPLATINUM (CARBOPLATIN) [Suspect]
     Indication: BREAST CANCER
     Dosage: 200 MG/M2, 1 DAY IV
     Route: 042
  3. THIOTEPA [Suspect]
     Indication: BREAST CANCER
     Dosage: 125 MG/M2, 1 DAY IV
     Route: 042

REACTIONS (9)
  - ABDOMINAL DISTENSION [None]
  - ABDOMINAL PAIN [None]
  - BOWEL SOUNDS ABNORMAL [None]
  - DIARRHOEA [None]
  - FLATULENCE [None]
  - INTESTINAL HYPOMOTILITY [None]
  - NAUSEA [None]
  - PYREXIA [None]
  - VOMITING [None]
